FAERS Safety Report 19624799 (Version 6)
Quarter: 2021Q4

REPORT INFORMATION
  Report Type: Spontaneous
  Country: US (occurrence: US)
  Receive Date: 20210729
  Receipt Date: 20211030
  Transmission Date: 20220303
  Serious: Yes (Hospitalization, Other)
  Sender: FDA-Public Use
  Company Number: US-UNITED THERAPEUTICS-UNT-2021-010985

PATIENT
  Sex: Male
  Weight: 89.796 kg

DRUGS (10)
  1. TYVASO [Suspect]
     Active Substance: TREPROSTINIL
     Indication: Pulmonary arterial hypertension
     Dosage: UNK
     Dates: start: 20210427
  2. TYVASO [Suspect]
     Active Substance: TREPROSTINIL
     Dosage: 18-54 ?G, QID
     Dates: start: 2021
  3. TYVASO [Suspect]
     Active Substance: TREPROSTINIL
     Dosage: UNK
  4. REMODULIN [Suspect]
     Active Substance: TREPROSTINIL
     Indication: Pulmonary arterial hypertension
     Dosage: UNK, CONTINUING
     Route: 041
     Dates: start: 2021
  5. REMODULIN [Suspect]
     Active Substance: TREPROSTINIL
     Indication: Pulmonary arterial hypertension
     Dosage: UNK, CONTINUING
     Route: 041
     Dates: start: 20210629
  6. REMODULIN [Suspect]
     Active Substance: TREPROSTINIL
     Dosage: 0.016 ?G/KG, CONTINUING
     Route: 041
     Dates: start: 2021
  7. REMODULIN [Suspect]
     Active Substance: TREPROSTINIL
     Dosage: 0.024 ?G/KG, CONTINUING
     Route: 041
     Dates: start: 2021
  8. OPSUMIT [Concomitant]
     Active Substance: MACITENTAN
     Indication: Pulmonary arterial hypertension
     Dosage: 10 MG, QD
     Route: 048
     Dates: start: 202103
  9. OPSUMIT [Concomitant]
     Active Substance: MACITENTAN
     Dosage: 10 MG, QD
     Route: 048
     Dates: start: 2021
  10. SILDENAFIL CITRATE [Concomitant]
     Active Substance: SILDENAFIL CITRATE
     Indication: Product used for unknown indication
     Dosage: 60 MG, QD (20 MG 3 IN ONE DAY)
     Route: 065

REACTIONS (16)
  - Oxygen saturation decreased [Not Recovered/Not Resolved]
  - Respiratory distress [Recovered/Resolved]
  - Heart rate increased [Recovered/Resolved]
  - Dyspnoea [Not Recovered/Not Resolved]
  - Pulmonary arterial hypertension [Not Recovered/Not Resolved]
  - Respiratory failure [Not Recovered/Not Resolved]
  - Right ventricular failure [Not Recovered/Not Resolved]
  - Fluid retention [Recovered/Resolved]
  - Presyncope [Recovered/Resolved]
  - Pain in extremity [Recovered/Resolved]
  - Pain in jaw [Recovered/Resolved]
  - Headache [Recovered/Resolved]
  - Diarrhoea [Recovered/Resolved]
  - Myalgia [Recovered/Resolved]
  - Dizziness [Not Recovered/Not Resolved]
  - Hypotension [Recovered/Resolved]

NARRATIVE: CASE EVENT DATE: 20210101
